FAERS Safety Report 7940160-9 (Version None)
Quarter: 2011Q4

REPORT INFORMATION
  Report Type: 
  Country: None (occurrence: None)
  Receive Date: 20111125
  Receipt Date: 20050608
  Transmission Date: 20120403
  Serious: Yes (Other)
  Sender: FDA-Public Use
  Company Number: PHHY2005BR006943

PATIENT
  Sex: Female
  Weight: 53 kg

DRUGS (4)
  1. GINKGO BILOBA [Concomitant]
     Dosage: 20 MG, UNK
  2. GLIMEPIRIDE [Concomitant]
     Indication: DIABETES MELLITUS
     Dosage: 1 MG, UNK
  3. EXFORGE [Suspect]
     Indication: HYPERTENSION
     Dosage: 1 DF, QD
     Route: 048
     Dates: start: 20050501
  4. CALCIUM CARBONATE [Concomitant]
     Indication: OSTEOPOROSIS PROPHYLAXIS
     Dosage: ONCE A WEEK

REACTIONS (2)
  - HYPOTENSION [None]
  - JOINT SWELLING [None]
